FAERS Safety Report 11473829 (Version 1)
Quarter: 2015Q3

REPORT INFORMATION
  Report Type: Spontaneous
  Country: US (occurrence: None)
  Receive Date: 20150902
  Receipt Date: 20150902
  Transmission Date: 20151125
  Serious: Yes (Hospitalization)
  Sender: FDA-Public Use
  Company Number: A-NJ2014-109080

PATIENT
  Age: 29 Year
  Sex: Female

DRUGS (2)
  1. VELETRI [Suspect]
     Active Substance: EPOPROSTENOL
     Indication: PULMONARY ARTERIAL HYPERTENSION
     Dosage: 14 NG/KG, PER MIN
     Route: 042
     Dates: start: 20141011
  2. REVITO (SILDENAFIL CITRATE) [Concomitant]

REACTIONS (7)
  - Back pain [None]
  - Condition aggravated [None]
  - Chest pain [None]
  - Hypoaesthesia [None]
  - Flushing [None]
  - Dizziness [None]
  - Erythema [None]
